FAERS Safety Report 10740149 (Version 4)
Quarter: 2016Q2

REPORT INFORMATION
  Report Type: Report from Study
  Country: CA (occurrence: CA)
  Receive Date: 20150127
  Receipt Date: 20160607
  Transmission Date: 20160815
  Serious: Yes (Other)
  Sender: FDA-Public Use
  Company Number: CA-ROCHE-1526403

PATIENT
  Age: 55 Year
  Sex: Female

DRUGS (12)
  1. METHYLPREDNISOLONE. [Concomitant]
     Active Substance: METHYLPREDNISOLONE
     Indication: PREMEDICATION
     Route: 042
     Dates: start: 20141216
  2. LORAZEPAM. [Concomitant]
     Active Substance: LORAZEPAM
     Route: 065
  3. VITAMINE B12 ROCHE [Concomitant]
  4. FOLIC ACID. [Concomitant]
     Active Substance: FOLIC ACID
  5. DIPHENHYDRAMINE HCL [Concomitant]
     Active Substance: DIPHENHYDRAMINE HYDROCHLORIDE
     Indication: PREMEDICATION
     Route: 048
     Dates: start: 20141216
  6. TYLENOL WITH CODEINE [Concomitant]
     Active Substance: ACETAMINOPHEN\CODEINE PHOSPHATE
  7. SYNTHROID [Concomitant]
     Active Substance: LEVOTHYROXINE SODIUM
     Route: 065
  8. RITUXAN [Suspect]
     Active Substance: RITUXIMAB
     Indication: RHEUMATOID ARTHRITIS
     Dosage: FREQUENCY: DAY 1 AND 15?LAST DOSE OF RITUXIMAB: 29/DEC/2014?LAST DOSE OF RITUXIMAB: 18/NOV/2015
     Route: 042
     Dates: start: 20141216
  9. ACETAMINOPHEN. [Concomitant]
     Active Substance: ACETAMINOPHEN
     Indication: PREMEDICATION
     Route: 048
     Dates: start: 20141216
  10. OXYCODONE [Concomitant]
     Active Substance: OXYCODONE
  11. METHOTREXATE [Concomitant]
     Active Substance: METHOTREXATE
  12. LOSEC [Concomitant]
     Active Substance: OMEPRAZOLE

REACTIONS (4)
  - Pain [Not Recovered/Not Resolved]
  - Arthritis infective [Unknown]
  - Rheumatoid arthritis [Not Recovered/Not Resolved]
  - Pain [Unknown]

NARRATIVE: CASE EVENT DATE: 20141219
